FAERS Safety Report 5646974-2 (Version None)
Quarter: 2008Q1

REPORT INFORMATION
  Report Type: 
  Country: None (occurrence: None)
  Receive Date: 20080303
  Receipt Date: 20080225
  Transmission Date: 20080703
  Serious: Yes (Hospitalization)
  Sender: FDA-Public Use
  Company Number: B0498274A

PATIENT
  Age: 66 Year
  Sex: Female
  Weight: 51 kg

DRUGS (1)
  1. LAMIVUDINE [Suspect]
     Indication: HEPATITIS B
     Dosage: 100MG PER DAY
     Route: 048
     Dates: start: 20041204, end: 20050113

REACTIONS (2)
  - BLOOD AMYLASE INCREASED [None]
  - LATENT AUTOIMMUNE DIABETES IN ADULTS [None]
